FAERS Safety Report 18196835 (Version 1)
Quarter: 2020Q3

REPORT INFORMATION
  Report Type: Spontaneous
  Country: US (occurrence: US)
  Receive Date: 20200826
  Receipt Date: 20200826
  Transmission Date: 20201103
  Serious: No
  Sender: FDA-Public Use
  Company Number: US-SPECGX-T202000363

PATIENT
  Age: 42 Year
  Sex: Male

DRUGS (3)
  1. OXYCODONE/ACETAMINOPHEN [Suspect]
     Active Substance: ACETAMINOPHEN\OXYCODONE HYDROCHLORIDE
     Indication: NECK PAIN
     Dosage: 1 DOSAGE FORM, Q6H
     Route: 048
  2. OXYCODONE/ACETAMINOPHEN [Suspect]
     Active Substance: ACETAMINOPHEN\OXYCODONE HYDROCHLORIDE
     Indication: BACK PAIN
     Dosage: UNK, ONLY TOOK TWO AND A HALF
     Route: 048
  3. IBUPROFEN. [Concomitant]
     Active Substance: IBUPROFEN
     Indication: PRODUCT USED FOR UNKNOWN INDICATION
     Dosage: UNK
     Route: 065

REACTIONS (9)
  - Diarrhoea [Recovering/Resolving]
  - Feeling abnormal [Recovering/Resolving]
  - Treatment noncompliance [Unknown]
  - Muscle spasms [Recovering/Resolving]
  - Anxiety [Recovering/Resolving]
  - Balance disorder [Recovering/Resolving]
  - Food interaction [Unknown]
  - Drug ineffective [Unknown]
  - Withdrawal syndrome [Recovering/Resolving]

NARRATIVE: CASE EVENT DATE: 202002
